FAERS Safety Report 7600083-1 (Version None)
Quarter: 2011Q3

REPORT INFORMATION
  Report Type: 
  Country: None (occurrence: None)
  Receive Date: 20110711
  Receipt Date: 20110705
  Transmission Date: 20111222
  Serious: Yes (Death)
  Sender: FDA-Public Use
  Company Number: US-ASTELLAS-2011US002566

PATIENT
  Sex: Male

DRUGS (15)
  1. PROGRAF [Suspect]
     Dosage: 10 MG, BID
     Route: 048
     Dates: start: 20080708
  2. BACTRIM DS [Concomitant]
     Indication: LUNG INFECTION
     Dosage: 800 MG/160 MG Q M, W, F
     Route: 048
  3. CELLCEPT [Concomitant]
     Indication: LUNG TRANSPLANT
     Dosage: 1500 MG, Q12 HOURS
     Route: 046
  4. PREDNISONE [Concomitant]
     Indication: LUNG TRANSPLANT
     Dosage: 40 MG, UID/QD
     Route: 048
  5. ZITHROMAX [Concomitant]
     Indication: LUNG INFECTION
     Dosage: 500 MG, UID/QD
     Route: 048
  6. NEXIUM [Concomitant]
     Indication: PROPHYLAXIS AGAINST GASTROINTESTINAL ULCER
     Dosage: 40 MG, UID/QD
     Route: 048
  7. PROGRAF [Suspect]
     Indication: LUNG TRANSPLANT
     Dosage: 6.5 MG, BID
     Route: 048
     Dates: start: 20080603
  8. MULTIVITAMINS, COMBINATIONS [Concomitant]
     Indication: VITAMIN SUPPLEMENTATION
     Dosage: UNK
     Route: 048
  9. OSCAL 500+D [Concomitant]
     Indication: VITAMIN SUPPLEMENTATION
  10. ZOVIRAX [Concomitant]
     Indication: VIRAL INFECTION
     Dosage: 200 MG, BID
     Route: 048
  11. LOPRESSOR [Concomitant]
     Dosage: 25 MG, Q12 HOURS
     Route: 048
  12. NOVOLOG [Concomitant]
     Indication: HYPERGLYCAEMIA
     Route: 058
  13. MAGNESIUM OXIDE [Concomitant]
     Indication: MINERAL SUPPLEMENTATION
     Dosage: 800 MG, Q12 HOURS
     Route: 048
  14. OSCAL 500+D [Concomitant]
     Indication: MINERAL SUPPLEMENTATION
     Dosage: 500 MG/2000U TID
     Route: 048
  15. FOSAMAX [Concomitant]
     Indication: OSTEOPOROSIS
     Dosage: 70 MG, WEEKLY
     Route: 048

REACTIONS (2)
  - LUNG CARCINOMA CELL TYPE UNSPECIFIED STAGE IV [None]
  - OFF LABEL USE [None]
